FAERS Safety Report 8295777-1 (Version None)
Quarter: 2012Q2

REPORT INFORMATION
  Report Type: 
  Country: None (occurrence: None)
  Receive Date: 20120418
  Receipt Date: 20120411
  Transmission Date: 20120825
  Serious: Yes (Other)
  Sender: FDA-Public Use
  Company Number: CA-ELI_LILLY_AND_COMPANY-CA201204003507

PATIENT
  Age: 68 Year
  Sex: Female

DRUGS (14)
  1. LASIX [Concomitant]
  2. ATIVAN [Concomitant]
  3. CALCIUM CARBONATE [Concomitant]
  4. DOMPERIDONE [Concomitant]
  5. PANTOPRAZOLE [Concomitant]
  6. POTASSIUM [Concomitant]
  7. SPIRIVA [Concomitant]
  8. CETIRIZINE HCL [Concomitant]
  9. FORTEO [Suspect]
     Dosage: 250 UG, QD
     Route: 058
  10. VITAMIN D [Concomitant]
  11. CYCLOBENZAPRINE HYDROCHLORIDE [Concomitant]
  12. SYNTHROID [Concomitant]
     Dosage: 50 UG, UNK
  13. NAPROXEN [Concomitant]
  14. TORADOL [Concomitant]

REACTIONS (13)
  - ABDOMINAL DISTENSION [None]
  - MOOD ALTERED [None]
  - PERIORBITAL OEDEMA [None]
  - ABDOMINAL PAIN [None]
  - CONSTIPATION [None]
  - SENSATION OF HEAVINESS [None]
  - ASTHENIA [None]
  - INTRA-ABDOMINAL PRESSURE INCREASED [None]
  - BACK PAIN [None]
  - EYE DISORDER [None]
  - CRYING [None]
  - FLATULENCE [None]
  - SWELLING FACE [None]
